FAERS Safety Report 9618375 (Version 2)
Quarter: 2013Q4

REPORT INFORMATION
  Report Type: Spontaneous
  Country: JP (occurrence: JP)
  Receive Date: 20131014
  Receipt Date: 20131118
  Transmission Date: 20140711
  Serious: Yes (Other)
  Sender: FDA-Public Use
  Company Number: JP-BRISTOL-MYERS SQUIBB COMPANY-19523935

PATIENT
  Age: 83 Year
  Sex: Female

DRUGS (1)
  1. ABILIFY ORAL SOLUTION [Suspect]
     Dosage: 0.1% SOLN
     Route: 048
     Dates: start: 201309

REACTIONS (1)
  - Hallucination [Recovered/Resolved]
